FAERS Safety Report 19166451 (Version 1)
Quarter: 2021Q2

REPORT INFORMATION
  Report Type: Spontaneous
  Country: US (occurrence: US)
  Receive Date: 20210420
  Receipt Date: 20210420
  Transmission Date: 20210717
  Serious: Yes (Disabling)
  Sender: FDA-Public Use
  Company Number: None

PATIENT
  Age: 50 Year
  Sex: Female
  Weight: 96.75 kg

DRUGS (7)
  1. CYMBALTA [Concomitant]
     Active Substance: DULOXETINE HYDROCHLORIDE
  2. LEVOFLOXACIN. [Suspect]
     Active Substance: LEVOFLOXACIN
     Indication: MASTITIS
     Dosage: ?          QUANTITY:1 TABLET(S);?
     Route: 048
     Dates: start: 20191219, end: 20191226
  3. AMBIEN [Concomitant]
     Active Substance: ZOLPIDEM TARTRATE
  4. OMEGA?3 FISH OIL [Concomitant]
     Active Substance: FISH OIL\OMEGA-3 FATTY ACIDS
  5. WOMEN^S MULTIVITAMIN [Concomitant]
  6. COLACE [Concomitant]
     Active Substance: DOCUSATE SODIUM
  7. WELLBUTRIN [Concomitant]
     Active Substance: BUPROPION HYDROCHLORIDE

REACTIONS (15)
  - Vision blurred [None]
  - Muscle atrophy [None]
  - Toxicity to various agents [None]
  - Insomnia [None]
  - Weight decreased [None]
  - Alopecia [None]
  - Hypovitaminosis [None]
  - Tendonitis [None]
  - Neuropathy peripheral [None]
  - Anxiety [None]
  - Psychotic disorder [None]
  - Neurotransmitter level altered [None]
  - Feeling abnormal [None]
  - Cognitive disorder [None]
  - Loss of employment [None]

NARRATIVE: CASE EVENT DATE: 20191219
